FAERS Safety Report 8780268 (Version 1)
Quarter: 2012Q4

REPORT INFORMATION
  Report Type: Spontaneous
  Country: US (occurrence: None)
  Receive Date: 20120829
  Receipt Date: 20120829
  Transmission Date: 20130627
  Serious: Yes (Death, Life-Threatening, Other)
  Sender: FDA-Public Use
  Company Number: MC201200159

PATIENT
  Age: 61 Year
  Sex: Male
  Weight: 149.7 kg

DRUGS (5)
  1. ANGIOMAX [Suspect]
     Indication: PERCUTANEOUS CORONARY INTERVENTION
     Dosage: bolus before wire placed
     Route: 042
     Dates: start: 20120309, end: 20120309
  2. ANGIOMAX [Suspect]
     Indication: PERCUTANEOUS CORONARY INTERVENTION
     Route: 042
  3. INTEGRILIN [Suspect]
     Indication: UNEVALUABLE EVENT
     Dosage: bolus before wire placed
     Route: 042
     Dates: start: 20120309, end: 20120309
  4. CLOPIDOGREL [Concomitant]
  5. ASPIRIN (ACETYLSALICYLIC ACID) [Concomitant]

REACTIONS (10)
  - Pulmonary haemorrhage [None]
  - Haemoptysis [None]
  - Cardio-respiratory arrest [None]
  - Hypotension [None]
  - Oxygen saturation decreased [None]
  - Reperfusion injury [None]
  - Pulmonary thrombosis [None]
  - Pulmonary oedema [None]
  - Embolism [None]
  - Procedural complication [None]
